FAERS Safety Report 6637183-9 (Version None)
Quarter: 2010Q1

REPORT INFORMATION
  Report Type: 
  Country: None (occurrence: None)
  Receive Date: 20100316
  Receipt Date: 20100104
  Transmission Date: 20100710
  Serious: No
  Sender: FDA-Public Use
  Company Number: US-ABBOTT-09P-163-0614383-00

PATIENT
  Sex: Female
  Weight: 79.45 kg

DRUGS (4)
  1. TRILIPIX [Suspect]
     Indication: BLOOD TRIGLYCERIDES INCREASED
     Dates: start: 20090318, end: 20090401
  2. SYNTHROID [Concomitant]
     Indication: HYPOTHYROIDISM
  3. RANITIDINE [Concomitant]
     Indication: HIATUS HERNIA
  4. RANITIDINE [Concomitant]
     Indication: GASTROOESOPHAGEAL REFLUX DISEASE

REACTIONS (2)
  - ABDOMINAL PAIN [None]
  - TINNITUS [None]
